FAERS Safety Report 15010045 (Version 2)
Quarter: 2018Q3

REPORT INFORMATION
  Report Type: Spontaneous
  Country: US (occurrence: US)
  Receive Date: 20180614
  Receipt Date: 20180801
  Transmission Date: 20181010
  Serious: No
  Sender: FDA-Public Use
  Company Number: US-PFIZER INC-2018240911

PATIENT
  Age: 58 Year
  Sex: Female
  Weight: 65.76 kg

DRUGS (3)
  1. LYRICA [Suspect]
     Active Substance: PREGABALIN
     Indication: NEURALGIA
     Dosage: UNK
  2. LYRICA [Suspect]
     Active Substance: PREGABALIN
     Dosage: UNK
  3. LIPITOR [Concomitant]
     Active Substance: ATORVASTATIN CALCIUM
     Indication: BLOOD CHOLESTEROL ABNORMAL
     Dosage: 10 MG, UNK(ONCE)

REACTIONS (8)
  - Nausea [Unknown]
  - Malaise [Unknown]
  - Fall [Unknown]
  - Withdrawal syndrome [Unknown]
  - Vision blurred [Unknown]
  - Dizziness [Unknown]
  - Palpitations [Unknown]
  - Blood pressure increased [Unknown]
